FAERS Safety Report 15482465 (Version 1)
Quarter: 2018Q4

REPORT INFORMATION
  Report Type: Spontaneous
  Country: GR (occurrence: GR)
  Receive Date: 20181010
  Receipt Date: 20181010
  Transmission Date: 20190205
  Serious: Yes (Death, Other)
  Sender: FDA-Public Use
  Company Number: PHHY2018GR119740

PATIENT
  Age: 16 Year
  Sex: Female

DRUGS (2)
  1. COLISTIMETHATE SODIUM. [Concomitant]
     Active Substance: COLISTIMETHATE SODIUM
     Indication: PRODUCT USED FOR UNKNOWN INDICATION
     Route: 041
  2. TIGECYCLINE. [Suspect]
     Active Substance: TIGECYCLINE
     Indication: KLEBSIELLA INFECTION
     Dosage: UNK
     Route: 065

REACTIONS (5)
  - Mydriasis [Fatal]
  - Shock [Fatal]
  - Klebsiella infection [Recovered/Resolved]
  - Brain oedema [Fatal]
  - Pyrexia [Recovered/Resolved]
